FAERS Safety Report 17631756 (Version 1)
Quarter: 2020Q2

REPORT INFORMATION
  Report Type: Spontaneous
  Country: CA (occurrence: CA)
  Receive Date: 20200406
  Receipt Date: 20200406
  Transmission Date: 20200713
  Serious: Yes (Other)
  Sender: FDA-Public Use
  Company Number: CA-ABBVIE-20K-028-3348692-00

PATIENT
  Sex: Female

DRUGS (1)
  1. LUPRON DEPOT [Suspect]
     Active Substance: LEUPROLIDE ACETATE
     Indication: PRODUCT USED FOR UNKNOWN INDICATION
     Route: 030

REACTIONS (9)
  - Choking sensation [Unknown]
  - Breast disorder [Unknown]
  - Dysphagia [Unknown]
  - Migraine [Unknown]
  - Nausea [Unknown]
  - Throat tightness [Unknown]
  - Dysphonia [Unknown]
  - Dyspnoea [Unknown]
  - Vomiting [Unknown]
